FAERS Safety Report 9260054 (Version 2)
Quarter: 2013Q2

REPORT INFORMATION
  Report Type: Spontaneous
  Country: US (occurrence: US)
  Receive Date: 20130429
  Receipt Date: 20130516
  Transmission Date: 20140414
  Serious: Yes (Hospitalization)
  Sender: FDA-Public Use
  Company Number: US-BAYER-2013-051744

PATIENT
  Age: 30 Year
  Sex: Female
  Weight: 81 kg

DRUGS (8)
  1. YAZ [Suspect]
     Dosage: UNK
     Dates: start: 200804
  2. SYNTHROID [Concomitant]
     Dosage: 75 ?G, UNK
     Dates: start: 20080722
  3. PRILOSEC [Concomitant]
     Dosage: UNK
     Dates: start: 20080716
  4. DIFFERIN [Concomitant]
     Dosage: UNK
     Dates: start: 20080716
  5. FLUTICASONE [Concomitant]
     Dosage: UNK
     Dates: start: 20080716
  6. HYDROCORTISONE [Concomitant]
     Dosage: UNK
     Dates: start: 20080716
  7. LEVOTHYROXINE [Concomitant]
  8. OMEPRAZOLE [Concomitant]

REACTIONS (7)
  - Pulmonary embolism [None]
  - Pain [None]
  - Injury [None]
  - General physical health deterioration [None]
  - Anxiety [None]
  - Emotional distress [None]
  - Pain [None]
